FAERS Safety Report 8372166-2 (Version None)
Quarter: 2012Q2

REPORT INFORMATION
  Report Type: 
  Country: None (occurrence: None)
  Receive Date: 20120521
  Receipt Date: 20120511
  Transmission Date: 20120825
  Serious: Yes (Hospitalization)
  Sender: FDA-Public Use
  Company Number: FR-BIOGENIDEC-2012BI016214

PATIENT
  Age: 28 Year
  Sex: Female

DRUGS (5)
  1. SOLU-MEDROL [Concomitant]
     Indication: MULTIPLE SCLEROSIS RELAPSE
     Route: 042
     Dates: start: 20120401
  2. TYSABRI [Suspect]
     Indication: MULTIPLE SCLEROSIS
     Route: 042
     Dates: start: 20080422, end: 20120122
  3. SOLU-MEDROL [Concomitant]
     Route: 042
     Dates: start: 20120401
  4. GILENYA [Concomitant]
     Indication: MULTIPLE SCLEROSIS
     Dates: start: 20120416, end: 20120429
  5. SOLU-MEDROL [Concomitant]
     Route: 042
     Dates: start: 20120401

REACTIONS (2)
  - PROGRESSIVE MULTIFOCAL LEUKOENCEPHALOPATHY [None]
  - IMMUNE RECONSTITUTION SYNDROME [None]
